FAERS Safety Report 7931485-1 (Version None)
Quarter: 2011Q4

REPORT INFORMATION
  Report Type: 
  Country: None (occurrence: None)
  Receive Date: 20111121
  Receipt Date: 20111121
  Transmission Date: 20120403
  Serious: Yes (Other)
  Sender: FDA-Public Use
  Company Number: None

PATIENT
  Age: 62 Year
  Sex: Male
  Weight: 54.43 kg

DRUGS (2)
  1. KEPPRA [Suspect]
     Indication: PROPHYLAXIS
     Dosage: 1,000MG
     Route: 050
     Dates: start: 20110908, end: 20110927
  2. KEPPRA [Concomitant]
     Indication: CONVULSION
     Dosage: 500MG
     Route: 050
     Dates: start: 20111018, end: 20111019

REACTIONS (4)
  - BLOOD ALKALINE PHOSPHATASE INCREASED [None]
  - ASPARTATE AMINOTRANSFERASE INCREASED [None]
  - ALANINE AMINOTRANSFERASE INCREASED [None]
  - CONVULSION [None]
